FAERS Safety Report 7310822-5 (Version None)
Quarter: 2011Q1

REPORT INFORMATION
  Report Type: 
  Country: None (occurrence: None)
  Receive Date: 20110224
  Receipt Date: 20110218
  Transmission Date: 20110831
  Serious: Yes (Life-Threatening, Hospitalization, Other)
  Sender: FDA-Public Use
  Company Number: PHHY2011US13745

PATIENT
  Age: 75 Year
  Sex: Female

DRUGS (6)
  1. BENADRYL [Suspect]
  2. DALKON SHIELD [Suspect]
  3. TEKTURNA [Concomitant]
  4. RITALIN [Suspect]
     Indication: NARCOLEPSY
     Dosage: 20 MG, BID
  5. PRAVACHOL [Concomitant]
     Dosage: UNK
  6. COREG CR [Concomitant]
     Dosage: UNK

REACTIONS (9)
  - BEDRIDDEN [None]
  - LACRIMATION INCREASED [None]
  - DRUG HYPERSENSITIVITY [None]
  - DIARRHOEA [None]
  - RASH [None]
  - EYE SWELLING [None]
  - APPARENT DEATH [None]
  - WEIGHT DECREASED [None]
  - PRURITUS [None]
